FAERS Safety Report 8568058 (Version 2)
Quarter: 2014Q2

REPORT INFORMATION
  Report Type: Spontaneous
  Country: US (occurrence: US)
  Receive Date: 20120518
  Receipt Date: 20140410
  Transmission Date: 20141212
  Serious: No
  Sender: FDA-Public Use
  Company Number: US-BIOGENIDEC-2012BI016647

PATIENT
  Sex: Male

DRUGS (4)
  1. AVONEX [Suspect]
     Indication: MULTIPLE SCLEROSIS
     Route: 030
  2. AVONEX [Suspect]
     Indication: MULTIPLE SCLEROSIS
     Route: 030
     Dates: start: 20040101, end: 20070101
  3. AVONEX [Suspect]
     Indication: MULTIPLE SCLEROSIS
     Route: 030
     Dates: start: 20120625, end: 2013
  4. WELLBUTRIN [Concomitant]

REACTIONS (10)
  - Hepatomegaly [Not Recovered/Not Resolved]
  - Pancreatic disorder [Not Recovered/Not Resolved]
  - Dyspepsia [Unknown]
  - Tinnitus [Unknown]
  - Hypoaesthesia [Unknown]
  - Pain [Unknown]
  - Influenza like illness [Recovered/Resolved]
  - Anxiety [Unknown]
  - Paraesthesia [Unknown]
  - Multiple sclerosis relapse [Unknown]
